FAERS Safety Report 6824247-X (Version None)
Quarter: 2010Q3

REPORT INFORMATION
  Report Type: 
  Country: None (occurrence: None)
  Receive Date: 20100708
  Receipt Date: 20061122
  Transmission Date: 20110219
  Serious: No
  Sender: FDA-Public Use
  Company Number: US-PFIZER INC-2006119324

PATIENT
  Sex: Male
  Weight: 95.25 kg

DRUGS (12)
  1. VARENICLINE [Suspect]
     Indication: SMOKING CESSATION THERAPY
     Dates: start: 20060921
  2. DEPAKOTE [Concomitant]
     Indication: BIPOLAR DISORDER
  3. TEGRETOL [Concomitant]
     Indication: BIPOLAR DISORDER
  4. LISINOPRIL [Concomitant]
     Indication: HYPERTENSION
  5. ALL OTHER THERAPEUTIC PRODUCTS [Concomitant]
  6. ACETYLSALICYLIC ACID [Concomitant]
  7. CALCIUM CARBONATE [Concomitant]
     Indication: OSTEOPENIA
  8. RANITIDINE [Concomitant]
  9. FOSAMAX [Concomitant]
     Indication: OSTEOPENIA
  10. HYDROCHLOROTHIAZIDE [Concomitant]
     Indication: HYPERTENSION
  11. QUETIAPINE [Concomitant]
     Indication: BIPOLAR DISORDER
  12. DIFLUNISAL [Concomitant]

REACTIONS (2)
  - FEELING ABNORMAL [None]
  - NAUSEA [None]
